FAERS Safety Report 9783002 (Version 2)
Quarter: 2014Q2

REPORT INFORMATION
  Report Type: Report from Study
  Country: MX (occurrence: MX)
  Receive Date: 20131226
  Receipt Date: 20140618
  Transmission Date: 20141212
  Serious: Yes (Other)
  Sender: FDA-Public Use
  Company Number: PHHY2013MX151761

PATIENT
  Age: 86 Year
  Sex: Male

DRUGS (6)
  1. STALEVO [Suspect]
     Indication: PARKINSON^S DISEASE
     Dosage: 1 DF (50 MG, 12.5 MG, 200 MG), DAILY
     Route: 048
     Dates: start: 201204, end: 201205
  2. STALEVO [Suspect]
     Dosage: UNK UKN, UNK (100 MG, 25 MG, 200 MG)
     Dates: start: 201309
  3. STALEVO [Suspect]
     Dosage: 1 DF, (100 MG, 25 MG, 200 MG) BID
     Route: 048
  4. STALEVO [Suspect]
     Dosage: 100 MG IN THE MORNING (200 MG, 100 MG, 25 MG), AND 50 MG IN THE AFTERNOON (200 MG, 50 MG, 12.5 MG)
     Route: 048
  5. LEVODOPA [Suspect]
  6. HIPOKINON [Concomitant]
     Indication: PARKINSON^S DISEASE
     Dosage: 0.5 UKN, UNK
     Dates: start: 201309

REACTIONS (14)
  - Herpes zoster [Not Recovered/Not Resolved]
  - Pruritus [Recovered/Resolved]
  - Feeling hot [Recovered/Resolved]
  - Speech disorder [Not Recovered/Not Resolved]
  - Feeling cold [Not Recovered/Not Resolved]
  - Nasopharyngitis [Unknown]
  - Chromaturia [Not Recovered/Not Resolved]
  - Insomnia [Not Recovered/Not Resolved]
  - Constipation [Not Recovered/Not Resolved]
  - Dyspepsia [Not Recovered/Not Resolved]
  - Abdominal pain upper [Not Recovered/Not Resolved]
  - Muscle spasms [Unknown]
  - Anxiety [Not Recovered/Not Resolved]
  - Drug intolerance [Not Recovered/Not Resolved]
